FAERS Safety Report 6621891-X (Version None)
Quarter: 2010Q1

REPORT INFORMATION
  Report Type: 
  Country: None (occurrence: None)
  Receive Date: 20100304
  Receipt Date: 20100218
  Transmission Date: 20100710
  Serious: Yes (Death)
  Sender: FDA-Public Use
  Company Number: MPS1-1000307

PATIENT
  Age: 8 Year
  Sex: Male
  Weight: 35 kg

DRUGS (1)
  1. ALDURAZYME [Suspect]
     Indication: MUCOPOLYSACCHARIDOSIS I
     Dosage: 14.5 MG, 1X/W, INTRAVENOUS
     Route: 042
     Dates: start: 20030130, end: 20100212

REACTIONS (3)
  - GASTROINTESTINAL STENOSIS [None]
  - PHARYNGEAL STENOSIS [None]
  - RESPIRATORY FAILURE [None]
